FAERS Safety Report 5079409-1 (Version None)
Quarter: 2006Q3

REPORT INFORMATION
  Report Type: 
  Country: None (occurrence: None)
  Receive Date: 20060814
  Receipt Date: 20060306
  Transmission Date: 20061208
  Serious: Yes (Hospitalization)
  Sender: FDA-Public Use
  Company Number: US-ROCHE-439163

PATIENT
  Age: 27 Year
  Sex: Female
  Weight: 59 kg

DRUGS (1)
  1. ACCUTANE [Suspect]
     Indication: ACNE
     Route: 048
     Dates: start: 19881115, end: 19890515

REACTIONS (12)
  - ANAEMIA [None]
  - BILIARY CIRRHOSIS PRIMARY [None]
  - COLITIS ULCERATIVE [None]
  - GASTROOESOPHAGEAL REFLUX DISEASE [None]
  - HAEMATOCHEZIA [None]
  - HEPATIC ENZYME INCREASED [None]
  - HEPATIC FAILURE [None]
  - INFLAMMATORY BOWEL DISEASE [None]
  - LIVER TRANSPLANT [None]
  - OEDEMA [None]
  - PREGNANCY [None]
  - PRURITUS [None]
